FAERS Safety Report 5914369-X (Version None)
Quarter: 2008Q4

REPORT INFORMATION
  Report Type: 
  Country: None (occurrence: None)
  Receive Date: 20081009
  Receipt Date: 20081002
  Transmission Date: 20090506
  Serious: Yes (Death)
  Sender: FDA-Public Use
  Company Number: CO-PFIZER INC-2008084016

PATIENT
  Sex: Male

DRUGS (1)
  1. CARDURA [Suspect]

REACTIONS (1)
  - PROSTATE CANCER [None]
